FAERS Safety Report 9554182 (Version 2)
Quarter: 2013Q4

REPORT INFORMATION
  Report Type: Report from Study
  Country: JP (occurrence: JP)
  Receive Date: 20130925
  Receipt Date: 20131009
  Transmission Date: 20140711
  Serious: Yes (Hospitalization)
  Sender: FDA-Public Use
  Company Number: JP-BAYER-2013-114596

PATIENT
  Age: 85 Year
  Sex: Female
  Weight: 41 kg

DRUGS (10)
  1. XARELTO [Suspect]
     Indication: CEREBROVASCULAR ACCIDENT PROPHYLAXIS
     Dosage: 10 MG, QD
     Route: 048
     Dates: start: 20130227, end: 20130807
  2. XARELTO [Interacting]
     Indication: ATRIAL FIBRILLATION
  3. XARELTO [Interacting]
     Indication: THROMBOSIS PROPHYLAXIS
  4. BAYASPIRIN [Interacting]
     Dosage: 100 MG, QD
     Route: 048
  5. CILOSTAZOL [Concomitant]
     Dosage: 100 MG, QD
     Route: 048
  6. CADUET [Concomitant]
     Dosage: 1 DF, QD
     Route: 048
  7. MAINTATE [Concomitant]
     Dosage: 0.625 MG, QD
     Route: 048
  8. CONSTAN [Concomitant]
     Dosage: 0.400 MG, QD
     Route: 048
  9. PLETAAL [Concomitant]
     Indication: PROPHYLAXIS
     Dosage: 100 MG, QD
     Route: 048
     Dates: end: 20130522
  10. LOXONIN [Concomitant]
     Dosage: 50 MG, QD
     Route: 062

REACTIONS (2)
  - Haemoptysis [Recovered/Resolved]
  - Drug interaction [None]
